FAERS Safety Report 24681865 (Version 2)
Quarter: 2024Q4

REPORT INFORMATION
  Report Type: Spontaneous
  Country: CN (occurrence: CN)
  Receive Date: 20241130
  Receipt Date: 20241205
  Transmission Date: 20250115
  Serious: Yes (Other)
  Sender: ALEXION PHARMACEUTICALS
  Company Number: CN-ASTRAZENECA-202411CHN016525CN

PATIENT
  Age: 57 Year
  Weight: 67.5 kg

DRUGS (16)
  1. DAPAGLIFLOZIN [Suspect]
     Active Substance: DAPAGLIFLOZIN
     Indication: Diabetes mellitus
     Dosage: 10 MILLIGRAM, QD
  2. DAPAGLIFLOZIN [Suspect]
     Active Substance: DAPAGLIFLOZIN
     Dosage: 10 MILLIGRAM, QD
  3. DAPAGLIFLOZIN [Suspect]
     Active Substance: DAPAGLIFLOZIN
     Dosage: 10 MILLIGRAM, QD
  4. DAPAGLIFLOZIN [Suspect]
     Active Substance: DAPAGLIFLOZIN
     Dosage: 10 MILLIGRAM, QD
  5. DULAGLUTIDE [Suspect]
     Active Substance: DULAGLUTIDE
     Indication: Diabetes mellitus
     Dosage: 1.5 MILLIGRAM, QW
  6. DULAGLUTIDE [Suspect]
     Active Substance: DULAGLUTIDE
     Dosage: 1.5 MILLIGRAM, QW
  7. DULAGLUTIDE [Suspect]
     Active Substance: DULAGLUTIDE
     Dosage: 1.5 MILLIGRAM, QW
  8. DULAGLUTIDE [Suspect]
     Active Substance: DULAGLUTIDE
     Dosage: 1.5 MILLIGRAM, QW
  9. GLUTATHIONE ABBOTT [Concomitant]
     Indication: Renal disorder
     Dosage: 1.2 GRAM, QD
  10. GLUTATHIONE ABBOTT [Concomitant]
     Dosage: 1.2 GRAM, QD
     Route: 065
  11. KERENDIA [Concomitant]
     Active Substance: FINERENONE
     Indication: Renal disorder
     Dosage: 20 MILLIGRAM, QD
  12. KERENDIA [Concomitant]
     Active Substance: FINERENONE
     Dosage: 20 MILLIGRAM, QD
     Route: 065
  13. FEBUXOSTAT ACCORD [Concomitant]
     Indication: Renal disorder
     Dosage: 40 MILLIGRAM, QOD
  14. FEBUXOSTAT ACCORD [Concomitant]
     Dosage: 40 MILLIGRAM, QOD
     Route: 065
  15. DILTIAZEM HYDROCHLORIDE [Concomitant]
     Active Substance: DILTIAZEM HYDROCHLORIDE
     Indication: Blood pressure management
     Dosage: 60 MILLIGRAM, QD
  16. DILTIAZEM HYDROCHLORIDE [Concomitant]
     Active Substance: DILTIAZEM HYDROCHLORIDE
     Dosage: 60 MILLIGRAM, QD

REACTIONS (1)
  - Renal failure [Recovering/Resolving]
